FAERS Safety Report 16224328 (Version 2)
Quarter: 2019Q2

REPORT INFORMATION
  Report Type: Spontaneous
  Country: BE (occurrence: BE)
  Receive Date: 20190422
  Receipt Date: 20190423
  Transmission Date: 20190711
  Serious: Yes (Hospitalization)
  Sender: FDA-Public Use
  Company Number: BE-PFIZER INC-2019163175

PATIENT
  Age: 73 Year
  Sex: Male
  Weight: 66 kg

DRUGS (7)
  1. TAMSULOSIN [Concomitant]
     Active Substance: TAMSULOSIN
     Dosage: 0.4 MG, UNK
  2. ASAFLOW [Concomitant]
     Active Substance: ASPIRIN
     Dosage: 80 MG, UNK
  3. CISPLATIN. [Suspect]
     Active Substance: CISPLATIN
     Indication: LUNG NEOPLASM MALIGNANT
     Dosage: 137.6 MG, EVERY 3 WEEKS
     Route: 042
     Dates: start: 20190131, end: 20190131
  4. NASONEX [Concomitant]
     Active Substance: MOMETASONE FUROATE
  5. CRESTOR [Concomitant]
     Active Substance: ROSUVASTATIN CALCIUM
     Dosage: 40 MG, 1X/DAY
  6. GEMCITABINE HYDROCHLORIDE. [Suspect]
     Active Substance: GEMCITABINE HYDROCHLORIDE
     Indication: LUNG NEOPLASM MALIGNANT
     Dosage: 3440 MG, EVERY 3 WEEKS (2ND CYCLE)
     Route: 042
     Dates: start: 20190207, end: 20190207
  7. ZYPREXA [Suspect]
     Active Substance: OLANZAPINE
     Indication: NAUSEA
     Dosage: 2 DF, 1X/DAY (5 MG)
     Dates: start: 20190101

REACTIONS (4)
  - Chest pain [Recovered/Resolved]
  - Groin pain [Recovered/Resolved]
  - Pain [Recovered/Resolved]
  - Abdominal rigidity [Recovered/Resolved]

NARRATIVE: CASE EVENT DATE: 20190215
